FAERS Safety Report 8165554-0 (Version None)
Quarter: 2012Q1

REPORT INFORMATION
  Report Type: 
  Country: None (occurrence: None)
  Receive Date: 20120227
  Receipt Date: 20120216
  Transmission Date: 20120608
  Serious: Yes (Hospitalization)
  Sender: FDA-Public Use
  Company Number: US-SANOFI-AVENTIS-2012SA010686

PATIENT
  Age: 63 Year
  Sex: Female

DRUGS (3)
  1. OPTICLICK [Suspect]
  2. LANTUS [Suspect]
     Dosage: 40 UNITS IN THE AM, 4 UNITS IN THE PM
     Route: 058
  3. CORTICOSTEROIDS [Concomitant]

REACTIONS (1)
  - ASTHMA [None]
